FAERS Safety Report 5654561-5 (Version None)
Quarter: 2008Q1

REPORT INFORMATION
  Report Type: 
  Country: None (occurrence: None)
  Receive Date: 20080307
  Receipt Date: 20080303
  Transmission Date: 20080703
  Serious: Yes (Other)
  Sender: FDA-Public Use
  Company Number: GB-BRISTOL-MYERS SQUIBB COMPANY-14098297

PATIENT
  Age: 45 Year
  Sex: Female

DRUGS (2)
  1. ABILIFY [Suspect]
     Indication: SCHIZOPHRENIA
     Route: 048
     Dates: start: 20080217, end: 20080218
  2. OLANZAPINE [Concomitant]
     Indication: SCHIZOPHRENIA
     Dosage: STOPPED ON 16FEB08 AND RECOMMENCED HALF A DOSE OF OLANZAPINE
     Route: 048

REACTIONS (5)
  - CONFUSIONAL STATE [None]
  - FEELING COLD [None]
  - HYPERHIDROSIS [None]
  - INFLUENZA LIKE ILLNESS [None]
  - PAIN [None]
